FAERS Safety Report 8870632 (Version 1)
Quarter: 2012Q4

REPORT INFORMATION
  Report Type: 
  Country: US (occurrence: US)
  Receive Date: 20121023
  Receipt Date: 20121023
  Transmission Date: 20130627
  Serious: No
  Sender: FDA-Public Use
  Company Number: US-AMGEN-USASP2012023515

PATIENT
  Sex: Female

DRUGS (9)
  1. ENBREL [Suspect]
     Indication: PRODUCT USED FOR UNKNOWN INDICATION
     Dosage: 50 mg, qwk
     Route: 058
  2. LEXAPRO [Concomitant]
     Dosage: 10 mg, UNK
  3. NEXIUM                             /01479302/ [Concomitant]
     Dosage: 40 mg, UNK
  4. CLARITIN                           /00413701/ [Concomitant]
     Dosage: 10 mg, UNK
  5. SINGULAIR [Concomitant]
     Dosage: 10 mg, UNK
  6. XOLAIR [Concomitant]
     Dosage: 150 mg, UNK
  7. ALTACE [Concomitant]
     Dosage: 10 mg, UNK
  8. VENTOLIN HFA [Concomitant]
     Dosage: UNK
  9. ALLERGY MEDICATION [Concomitant]
     Dosage: UNK

REACTIONS (1)
  - Malaise [Unknown]
